FAERS Safety Report 6517821-1 (Version None)
Quarter: 2009Q4

REPORT INFORMATION
  Report Type: 
  Country: None (occurrence: None)
  Receive Date: 20091224
  Receipt Date: 20091222
  Transmission Date: 20100525
  Serious: Yes (Other)
  Sender: FDA-Public Use
  Company Number: GB-WYE-G05074509

PATIENT
  Age: 54 Year
  Sex: Male

DRUGS (4)
  1. EFFEXOR [Suspect]
     Route: 048
     Dates: start: 20090401
  2. EFFEXOR [Suspect]
     Route: 048
  3. EFFEXOR [Suspect]
     Route: 048
  4. PERINDOPRIL [Concomitant]
     Dosage: 4 MG (FREQUENCY UNKNOWN)
     Dates: start: 20090401, end: 20091203

REACTIONS (4)
  - CARDIAC VALVE DISEASE [None]
  - INTENTIONAL DRUG MISUSE [None]
  - PLATELET COUNT INCREASED [None]
  - SLEEP DISORDER [None]
